FAERS Safety Report 18542739 (Version 1)
Quarter: 2020Q4

REPORT INFORMATION
  Report Type: Spontaneous
  Country: US (occurrence: US)
  Receive Date: 20201125
  Receipt Date: 20201125
  Transmission Date: 20210114
  Serious: No
  Sender: FDA-Public Use
  Company Number: US-JNJFOC-20201139688

PATIENT
  Age: 47 Year
  Sex: Male
  Weight: 82.63 kg

DRUGS (1)
  1. VISINE A MULTI-ACTION EYE ALLERGY RELIEF [Suspect]
     Active Substance: NAPHAZOLINE HYDROCHLORIDE\PHENIRAMINE MALEATE
     Indication: EYE ALLERGY
     Dosage: 1 DROP IN EACH EYE ONCE
     Route: 047
     Dates: start: 20201115

REACTIONS (3)
  - Eye swelling [Recovered/Resolved]
  - Eye pruritus [Not Recovered/Not Resolved]
  - Eye irritation [Recovered/Resolved]

NARRATIVE: CASE EVENT DATE: 20201115
